FAERS Safety Report 13542923 (Version 1)
Quarter: 2017Q2

REPORT INFORMATION
  Report Type: Spontaneous
  Country: IN (occurrence: IN)
  Receive Date: 20170513
  Receipt Date: 20170513
  Transmission Date: 20170830
  Serious: Yes (Other)
  Sender: FDA-Public Use
  Company Number: IN-GLENMARK PHARMACEUTICALS-2017GMK027449

PATIENT
  Age: 30 Year
  Sex: Female

DRUGS (4)
  1. HYDROCORTISONE BUTYRATE. [Suspect]
     Active Substance: HYDROCORTISONE BUTYRATE
     Indication: BREAST CANCER
     Dosage: BI WEEKLY TRIPLE THERAPY, MCP-841 PROTOCOL
     Route: 037
  2. CYTARABINE. [Suspect]
     Active Substance: CYTARABINE
     Indication: BREAST CANCER
     Dosage: BI WEEKLY TRIPLE THERAPY,MCP-841 PROTOCOL
     Route: 037
  3. VINCRISTINE [Suspect]
     Active Substance: VINCRISTINE
     Indication: BREAST CANCER
     Dosage: UNK
     Route: 065
  4. METHOTREXATE. [Suspect]
     Active Substance: METHOTREXATE
     Indication: BREAST CANCER
     Dosage: BI WEEKLY TRIPLE THERAPY, MCP-841 PROTOCOL
     Route: 037

REACTIONS (2)
  - Febrile neutropenia [Unknown]
  - Hepatotoxicity [Unknown]
